FAERS Safety Report 12245588 (Version 2)
Quarter: 2016Q2

REPORT INFORMATION
  Report Type: Spontaneous
  Country: CH (occurrence: CH)
  Receive Date: 20160407
  Receipt Date: 20160512
  Transmission Date: 20160815
  Serious: Yes (Other)
  Sender: FDA-Public Use
  Company Number: CH-ELI_LILLY_AND_COMPANY-CH201604000119

PATIENT
  Age: 45 Year
  Sex: Male
  Weight: 100 kg

DRUGS (2)
  1. TAXOL [Concomitant]
     Active Substance: PACLITAXEL
     Indication: PRODUCT USED FOR UNKNOWN INDICATION
     Dosage: 160 (UNITS UNSPECIFIED) UNKNOWN
     Route: 065
     Dates: start: 20160114, end: 20160324
  2. CYRAMZA [Suspect]
     Active Substance: RAMUCIRUMAB
     Indication: PRODUCT USED FOR UNKNOWN INDICATION
     Dosage: 800(UNITS UNSPECIFIED), UNKNOWN
     Route: 065
     Dates: start: 20160114, end: 20160324

REACTIONS (2)
  - Venous thrombosis [Unknown]
  - Jugular vein thrombosis [Unknown]

NARRATIVE: CASE EVENT DATE: 20160329
